FAERS Safety Report 9915668 (Version 1)
Quarter: 2014Q1

REPORT INFORMATION
  Report Type: Spontaneous
  Country: US (occurrence: None)
  Receive Date: 20140219
  Receipt Date: 20140219
  Transmission Date: 20141002
  Serious: Yes (Disabling)
  Sender: FDA-Public Use
  Company Number: None

PATIENT
  Age: 60 Year
  Sex: Male
  Weight: 104.33 kg

DRUGS (21)
  1. TIVICAY [Suspect]
     Indication: HIV INFECTION
     Route: 048
     Dates: start: 20140114
  2. NEXIUM [Concomitant]
  3. ZOCOR [Concomitant]
  4. TRAVUDA [Concomitant]
  5. EFFEXOR [Concomitant]
  6. ABILIFY [Concomitant]
  7. POTASSIUM CHLORIDE [Concomitant]
  8. MAXIDE [Concomitant]
  9. FLOMAX [Concomitant]
  10. BENATOPHINE [Concomitant]
  11. METOPROLOL [Concomitant]
  12. RANIDINE [Concomitant]
  13. FINASTERIDE [Concomitant]
  14. TRAZADONE [Concomitant]
  15. FISH-OIL [Concomitant]
  16. OCCUVITE [Concomitant]
  17. GERITOL [Concomitant]
  18. B-12 TABS [Concomitant]
  19. VITAMIN E [Concomitant]
  20. GINKOBA [Concomitant]
  21. APPLE VINEGAR [Concomitant]

REACTIONS (6)
  - Pyrexia [None]
  - Chromaturia [None]
  - Faeces discoloured [None]
  - Fatigue [None]
  - Dysuria [None]
  - Nausea [None]
